FAERS Safety Report 10577116 (Version 1)
Quarter: 2014Q4

REPORT INFORMATION
  Report Type: Spontaneous
  Country: US (occurrence: US)
  Receive Date: 20141111
  Receipt Date: 20141111
  Transmission Date: 20150529
  Serious: Yes (Other)
  Sender: FDA-Public Use
  Company Number: US-GLAXOSMITHKLINE-US2014GSK018243

PATIENT
  Sex: Female

DRUGS (13)
  1. AMILORIDE HCL W/ HYDROCHLOROTHIAZIDE [Concomitant]
     Active Substance: AMILORIDE HYDROCHLORIDE\HYDROCHLOROTHIAZIDE
  2. TYLENOL [Concomitant]
     Active Substance: ACETAMINOPHEN
  3. VOTRIENT [Suspect]
     Active Substance: PAZOPANIB HYDROCHLORIDE
     Indication: RENAL CANCER
     Dosage: 400 MG, QD
     Route: 048
     Dates: start: 20140211
  4. ALBUTEROL. [Concomitant]
     Active Substance: ALBUTEROL
  5. FENTANYL. [Concomitant]
     Active Substance: FENTANYL
  6. GABAPENTIN. [Concomitant]
     Active Substance: GABAPENTIN
  7. MECLIZINE [Concomitant]
     Active Substance: MECLIZINE\MECLIZINE HYDROCHLORIDE
  8. OMEPRAZOLE. [Concomitant]
     Active Substance: OMEPRAZOLE
  9. SIMVASTATIN. [Concomitant]
     Active Substance: SIMVASTATIN
  10. ISOSORBIDE [Concomitant]
     Active Substance: ISOSORBIDE
  11. ENALAPRIL [Concomitant]
     Active Substance: ENALAPRIL
  12. PERCOCET [Concomitant]
     Active Substance: ACETAMINOPHEN\OXYCODONE HYDROCHLORIDE
  13. PROMETHAZINE [Concomitant]
     Active Substance: PROMETHAZINE\PROMETHAZINE HYDROCHLORIDE

REACTIONS (8)
  - Vomiting [Unknown]
  - Neuropathy peripheral [Unknown]
  - Malaise [Unknown]
  - Dysuria [Unknown]
  - Hair colour changes [Unknown]
  - Pyrexia [Unknown]
  - Amnesia [Unknown]
  - Dehydration [Unknown]
